FAERS Safety Report 19177021 (Version 1)
Quarter: 2021Q2

REPORT INFORMATION
  Report Type: Spontaneous
  Country: AU (occurrence: AU)
  Receive Date: 20210424
  Receipt Date: 20210424
  Transmission Date: 20210717
  Serious: Yes (Hospitalization, Other)
  Sender: FDA-Public Use
  Company Number: NVSC2021AU091697

PATIENT
  Age: 64 Year
  Sex: Male

DRUGS (4)
  1. PANADOL [Concomitant]
     Active Substance: ACETAMINOPHEN
     Indication: OSTEOARTHRITIS
     Dosage: UNK
     Route: 065
  2. PERINDOPRIL [Suspect]
     Active Substance: PERINDOPRIL
     Indication: PRODUCT USED FOR UNKNOWN INDICATION
     Dosage: 5 MG, QD
     Route: 065
  3. METFORMIN [Suspect]
     Active Substance: METFORMIN HYDROCHLORIDE
     Indication: PRODUCT USED FOR UNKNOWN INDICATION
     Dosage: 500 MG, BID
     Route: 065
  4. MELOXICAM. [Suspect]
     Active Substance: MELOXICAM
     Indication: PRODUCT USED FOR UNKNOWN INDICATION
     Dosage: 15 MG, BID
     Route: 065

REACTIONS (19)
  - Ejection fraction decreased [Unknown]
  - Dizziness [Not Recovered/Not Resolved]
  - Dyspnoea exertional [Unknown]
  - Decreased appetite [Unknown]
  - Blood pressure decreased [Unknown]
  - Oedema [Recovered/Resolved]
  - Polyuria [Unknown]
  - Weight increased [Recovering/Resolving]
  - Insomnia [Recovering/Resolving]
  - Iron deficiency [Unknown]
  - Cardiac failure [Unknown]
  - Gout [Recovered/Resolved]
  - Exercise tolerance decreased [Recovering/Resolving]
  - Dizziness postural [Unknown]
  - Presyncope [Unknown]
  - Dyspnoea [Unknown]
  - Bundle branch block left [Unknown]
  - Heart rate increased [Unknown]
  - Swelling [Recovered/Resolved]
